FAERS Safety Report 22289928 (Version 1)
Quarter: 2023Q2

REPORT INFORMATION
  Report Type: Spontaneous
  Country: FR (occurrence: FR)
  Receive Date: 20230505
  Receipt Date: 20230505
  Transmission Date: 20230722
  Serious: Yes (Hospitalization)
  Sender: FDA-Public Use
  Company Number: None

PATIENT
  Age: 45 Year
  Sex: Female

DRUGS (5)
  1. CIPROFLOXACIN [Suspect]
     Active Substance: CIPROFLOXACIN
     Indication: Infection
     Dosage: 500 MG, QD
     Route: 048
     Dates: start: 20230119, end: 20230306
  2. AMOXICILLIN [Suspect]
     Active Substance: AMOXICILLIN
     Indication: Infection
     Route: 048
     Dates: start: 20230119, end: 20230214
  3. CLINDAMYCIN HYDROCHLORIDE [Concomitant]
     Active Substance: CLINDAMYCIN HYDROCHLORIDE
     Indication: Infection
     Route: 042
     Dates: start: 20230111, end: 20230116
  4. CLINDAMYCIN HYDROCHLORIDE [Concomitant]
     Active Substance: CLINDAMYCIN HYDROCHLORIDE
     Indication: Infection
     Dosage: 600 MG
     Route: 048
     Dates: start: 20230222, end: 20230306
  5. LEVOTHYROXINE [Concomitant]
     Active Substance: LEVOTHYROXINE

REACTIONS (1)
  - Neutropenia [Recovered/Resolved]

NARRATIVE: CASE EVENT DATE: 20230209
